FAERS Safety Report 23306010 (Version 7)
Quarter: 2025Q2

REPORT INFORMATION
  Report Type: Report from Study
  Country: US (occurrence: US)
  Receive Date: 20231218
  Receipt Date: 20250425
  Transmission Date: 20250717
  Serious: Yes (Other)
  Sender: TAKEDA
  Company Number: US-TAKEDA-2023TUS120077

PATIENT
  Sex: Female

DRUGS (26)
  1. VEDOLIZUMAB [Suspect]
     Active Substance: VEDOLIZUMAB
     Indication: Crohn^s disease
  2. VEDOLIZUMAB [Suspect]
     Active Substance: VEDOLIZUMAB
     Indication: Colitis ulcerative
  3. VEDOLIZUMAB [Suspect]
     Active Substance: VEDOLIZUMAB
     Indication: Crohn^s disease
     Dosage: 108 MILLIGRAM, Q2WEEKS
     Dates: start: 20250129
  4. VEDOLIZUMAB [Suspect]
     Active Substance: VEDOLIZUMAB
  5. SODIUM CHLORIDE [Concomitant]
     Active Substance: SODIUM CHLORIDE
  6. ROSUVASTATIN [Concomitant]
     Active Substance: ROSUVASTATIN
  7. VITAMIN D [Concomitant]
     Active Substance: VITAMIN D NOS
  8. OXYBUTYNIN [Concomitant]
     Active Substance: OXYBUTYNIN
  9. ZYRTEC [Concomitant]
     Active Substance: CETIRIZINE HYDROCHLORIDE
  10. ALPRAZOLAM [Concomitant]
     Active Substance: ALPRAZOLAM
  11. CRANBERRY [Concomitant]
     Active Substance: CRANBERRY
  12. VITAMINS [Concomitant]
     Active Substance: VITAMINS
  13. Wal phed d [Concomitant]
  14. Wal phed d [Concomitant]
  15. ALLEGRA D-12 HOUR [Concomitant]
     Active Substance: FEXOFENADINE HYDROCHLORIDE\PSEUDOEPHEDRINE HYDROCHLORIDE
  16. ESTRADIOL [Concomitant]
     Active Substance: ESTRADIOL
  17. GINKGO [Concomitant]
     Active Substance: GINKGO
  18. MENAQUINONE 6 [Concomitant]
     Active Substance: MENAQUINONE 6
  19. DEMANNOSE [Concomitant]
     Active Substance: DEMANNOSE
  20. LOMOTIL [Concomitant]
     Active Substance: ATROPINE SULFATE\DIPHENOXYLATE HYDROCHLORIDE
  21. OMEPRAZOLE [Concomitant]
     Active Substance: OMEPRAZOLE
  22. TYLENOL [Concomitant]
     Active Substance: ACETAMINOPHEN
  23. CHOLECALCIFEROL [Concomitant]
     Active Substance: CHOLECALCIFEROL
  24. CITALOPRAM [Concomitant]
     Active Substance: CITALOPRAM
  25. COENZYME Q10 [Concomitant]
     Active Substance: DIETARY SUPPLEMENT\UBIDECARENONE
  26. FENOFIBRATE [Concomitant]
     Active Substance: FENOFIBRATE

REACTIONS (8)
  - Crohn^s disease [Not Recovered/Not Resolved]
  - Irritable bowel syndrome [Unknown]
  - Stress [Unknown]
  - Weight fluctuation [Not Recovered/Not Resolved]
  - Impaired quality of life [Not Recovered/Not Resolved]
  - Infection [Unknown]
  - Drug ineffective [Not Recovered/Not Resolved]
  - Diarrhoea [Unknown]
